FAERS Safety Report 4352950-2 (Version None)
Quarter: 2004Q2

REPORT INFORMATION
  Report Type: 
  Country: None (occurrence: None)
  Receive Date: 20040429
  Receipt Date: 20040416
  Transmission Date: 20050107
  Serious: Yes (Death, Life-Threatening, Hospitalization, Other)
  Sender: FDA-Public Use
  Company Number: 2004004448

PATIENT
  Sex: Male

DRUGS (4)
  1. VFEND [Suspect]
     Indication: ILL-DEFINED DISORDER
     Dosage: ORAL
     Route: 048
  2. ANTIBACTERIALS FOR SYSTEMIC USE (ANTIBACTERIALS FOR SYSTEMIC USE) [Concomitant]
  3. LINEZOLID (LINEZOLID) [Concomitant]
  4. AMPHOTERICIN B [Concomitant]

REACTIONS (4)
  - COAGULOPATHY [None]
  - LEUKAEMIA [None]
  - PLATELET COUNT DECREASED [None]
  - SUBDURAL HAEMORRHAGE [None]
